APPROVED DRUG PRODUCT: ARSENIC TRIOXIDE
Active Ingredient: ARSENIC TRIOXIDE
Strength: 1MG/ML
Dosage Form/Route: INJECTABLE;INJECTION
Application: A215059 | Product #002 | TE Code: AP
Applicant: GLAND PHARMA LTD
Approved: Apr 22, 2022 | RLD: No | RS: No | Type: RX